FAERS Safety Report 24167800 (Version 1)
Quarter: 2024Q3

REPORT INFORMATION
  Report Type: Other
  Country: CA (occurrence: CA)
  Receive Date: 20240802
  Receipt Date: 20240802
  Transmission Date: 20241017
  Serious: Yes (Other)
  Sender: PFIZER
  Company Number: CA-PFIZER INC-202400227624

PATIENT
  Age: 23 Year
  Sex: Male

DRUGS (11)
  1. BLEOMYCIN SULFATE [Suspect]
     Active Substance: BLEOMYCIN SULFATE
     Indication: Skin papilloma
     Dosage: UNK, CYCLIC
     Route: 026
  2. SIROLIMUS [Suspect]
     Active Substance: SIROLIMUS
     Indication: Skin papilloma
     Route: 065
  3. DINITROCHLOROBENZENE [Suspect]
     Active Substance: DINITROCHLOROBENZENE
     Indication: Skin papilloma
     Dosage: UNK, CYCLIC
     Route: 065
  4. ACITRETIN [Suspect]
     Active Substance: ACITRETIN
     Indication: Skin papilloma
     Dosage: UNK, 1X/DAY
     Route: 065
  5. ALDARA [Suspect]
     Active Substance: IMIQUIMOD
     Indication: Skin papilloma
     Dosage: UNK
     Route: 061
  6. CANTHARIDIN\PODOPHYLLUM\SALICYLIC ACID [Suspect]
     Active Substance: CANTHARIDIN\PODOPHYLLUM\SALICYLIC ACID
     Indication: Skin papilloma
     Route: 065
  7. CIDOFOVIR [Suspect]
     Active Substance: CIDOFOVIR
     Indication: Skin papilloma
     Dosage: UNK
     Route: 061
  8. CIMETIDINE [Suspect]
     Active Substance: CIMETIDINE
     Indication: Skin papilloma
     Dosage: UNK, 1X/DAY
     Route: 065
  9. SALICYLIC ACID [Suspect]
     Active Substance: SALICYLIC ACID
     Indication: Skin papilloma
     Route: 065
  10. MYCOPHENOLATE MOFETIL [Concomitant]
     Active Substance: MYCOPHENOLATE MOFETIL
     Indication: Immunosuppression
     Route: 065
  11. PREDNISONE [Concomitant]
     Active Substance: PREDNISONE
     Indication: Immunosuppression
     Route: 065

REACTIONS (2)
  - Multiple-drug resistance [Unknown]
  - Off label use [Unknown]
